FAERS Safety Report 15933602 (Version 1)
Quarter: 2019Q1

REPORT INFORMATION
  Report Type: Spontaneous
  Country: US (occurrence: US)
  Receive Date: 20190207
  Receipt Date: 20190207
  Transmission Date: 20190417
  Serious: Yes (Other)
  Sender: FDA-Public Use
  Company Number: US-UPSHER-SMITH LABORATORIES, LLC-2019USL00056

PATIENT
  Sex: Male

DRUGS (1)
  1. VIGADRONE [Suspect]
     Active Substance: VIGABATRIN
     Dosage: UNK
     Dates: start: 20181226

REACTIONS (5)
  - Musculoskeletal disorder [Unknown]
  - Hypersomnia [Unknown]
  - Salivary hypersecretion [Unknown]
  - Cough [Unknown]
  - Eye movement disorder [Unknown]
